FAERS Safety Report 25216987 (Version 1)
Quarter: 2025Q2

REPORT INFORMATION
  Report Type: Spontaneous
  Country: US (occurrence: US)
  Receive Date: 20250419
  Receipt Date: 20250419
  Transmission Date: 20250717
  Serious: Yes (Other)
  Sender: ASPIRO PHARMA
  Company Number: US-ASPIRO-ASP2025US01864

PATIENT
  Age: 14 Year
  Sex: Female

DRUGS (1)
  1. PROPOFOL [Suspect]
     Active Substance: PROPOFOL
     Indication: Sedation
     Route: 065

REACTIONS (2)
  - Liver injury [Recovering/Resolving]
  - Propofol infusion syndrome [Recovering/Resolving]
